FAERS Safety Report 15671161 (Version 1)
Quarter: 2018Q4

REPORT INFORMATION
  Report Type: Spontaneous
  Country: US (occurrence: US)
  Receive Date: 20181129
  Receipt Date: 20181129
  Transmission Date: 20190205
  Serious: No
  Sender: FDA-Public Use
  Company Number: US-SUNOVION-2018SUN004552

PATIENT
  Age: 86 Year
  Sex: Male
  Weight: 83.9 kg

DRUGS (7)
  1. ELIQUIS [Concomitant]
     Active Substance: APIXABAN
     Indication: CARDIAC PACEMAKER INSERTION
     Dosage: 5 MG, BID
     Route: 048
     Dates: start: 2012
  2. CODEINE PHOSPHATE SESQUIHYDRATE W/PARACETAMOL [Concomitant]
     Indication: INTERVERTEBRAL DISC PROTRUSION
     Dosage: 300 MG, ONE PILL A MONTH
  3. CODEINE PHOSPHATE SESQUIHYDRATE W/PARACETAMOL [Concomitant]
     Indication: HERNIA PAIN
  4. MELATONIN [Concomitant]
     Active Substance: MELATONIN
     Indication: INSOMNIA
     Dosage: 5 MG, AS NECESSARY
     Route: 048
  5. DILTIAZEM. [Concomitant]
     Active Substance: DILTIAZEM
     Dosage: 120 MG, QD
     Route: 048
  6. LUNESTA [Suspect]
     Active Substance: ESZOPICLONE
     Indication: INSOMNIA
     Dosage: 2 MG, 1 TABLET IN THE EVENING (NOT EVERY NIGHT)
     Route: 048
  7. ALFUZOSIN [Concomitant]
     Active Substance: ALFUZOSIN
     Indication: DYSURIA
     Dosage: EVENING 10 MG, UNK
     Route: 048

REACTIONS (3)
  - Middle insomnia [Unknown]
  - Drug ineffective [Unknown]
  - Insomnia [Unknown]

NARRATIVE: CASE EVENT DATE: 20181118
